FAERS Safety Report 7433276-7 (Version None)
Quarter: 2011Q2

REPORT INFORMATION
  Report Type: 
  Country: None (occurrence: None)
  Receive Date: 20110422
  Receipt Date: 20110415
  Transmission Date: 20111010
  Serious: No
  Sender: FDA-Public Use
  Company Number: US-B.I. PHARMACEUTICALS,INC./RIDGEFIELD-2011-BP-11066BP

PATIENT
  Sex: Male

DRUGS (12)
  1. CILOSTAZOL [Concomitant]
     Indication: POOR PERIPHERAL CIRCULATION
     Dates: start: 20080101
  2. ASPIRIN [Concomitant]
     Indication: ATRIAL FIBRILLATION
     Dates: start: 20050101
  3. LEXAPRO [Concomitant]
     Indication: ANXIETY
     Dates: start: 20060101
  4. FINASTERIDE [Concomitant]
     Indication: PROSTATOMEGALY
     Dates: start: 20060101
  5. NIACIN [Suspect]
     Indication: BLOOD CHOLESTEROL INCREASED
     Dates: start: 20090101
  6. LISINOPRIL [Concomitant]
     Indication: HYPERTENSION
     Dates: start: 20040101
  7. ZOCOR [Concomitant]
     Indication: BLOOD CHOLESTEROL INCREASED
     Dates: start: 20010101
  8. PRADAXA [Suspect]
     Indication: ATRIAL FIBRILLATION
     Dosage: 300 MG
     Route: 048
     Dates: start: 20110415
  9. BYSTOLIC [Concomitant]
     Indication: HYPERTENSION
     Dates: start: 20050101
  10. BUSPAR [Concomitant]
     Indication: ANXIETY
     Dates: start: 20060101
  11. AMIODARONE [Concomitant]
     Indication: ATRIAL FIBRILLATION
     Dates: start: 20090101
  12. HYDORCHLOROTHIAZIDE [Concomitant]
     Indication: HYPERTENSION
     Dates: start: 20040101

REACTIONS (1)
  - HOT FLUSH [None]
